FAERS Safety Report 23385153 (Version 2)
Quarter: 2024Q2

REPORT INFORMATION
  Report Type: Report from Study
  Country: US (occurrence: US)
  Receive Date: 20240110
  Receipt Date: 20240408
  Transmission Date: 20240715
  Serious: Yes (Hospitalization)
  Sender: FDA-Public Use
  Company Number: US-UCBSA-2024000931

PATIENT
  Age: 78 Year
  Sex: Male

DRUGS (1)
  1. ROTIGOTINE [Suspect]
     Active Substance: ROTIGOTINE
     Indication: Parkinson^s disease
     Dosage: 4 MILLIGRAM, ONCE DAILY (QD), (PATCH DAILY)
     Route: 062

REACTIONS (6)
  - Cardiac disorder [Not Recovered/Not Resolved]
  - Pneumonia [Not Recovered/Not Resolved]
  - Restlessness [Not Recovered/Not Resolved]
  - Clumsiness [Not Recovered/Not Resolved]
  - Product availability issue [Unknown]
  - Therapy interrupted [Unknown]

NARRATIVE: CASE EVENT DATE: 20231216
